FAERS Safety Report 5576478-7 (Version None)
Quarter: 2007Q4

REPORT INFORMATION
  Report Type: 
  Country: None (occurrence: None)
  Receive Date: 20071228
  Receipt Date: 20071219
  Transmission Date: 20080405
  Serious: Yes (Congenital Anomaly)
  Sender: FDA-Public Use
  Company Number: GB-ABBOTT-06P-167-0339816-00

PATIENT
  Sex: Male

DRUGS (1)
  1. EPILIM [Suspect]
     Indication: DRUG EXPOSURE DURING PREGNANCY

REACTIONS (11)
  - ATTENTION DEFICIT/HYPERACTIVITY DISORDER [None]
  - DISTURBANCE IN SOCIAL BEHAVIOUR [None]
  - DYSLEXIA [None]
  - DYSMORPHISM [None]
  - DYSPRAXIA [None]
  - FOETAL ANTICONVULSANT SYNDROME [None]
  - HYPOKINESIA [None]
  - LEARNING DISORDER [None]
  - SPEECH DISORDER [None]
  - SPINAL COLUMN STENOSIS [None]
  - VISUAL DISTURBANCE [None]
